FAERS Safety Report 5067138-X (Version None)
Quarter: 2006Q3

REPORT INFORMATION
  Report Type: 
  Country: None (occurrence: None)
  Receive Date: 20060727
  Receipt Date: 20060712
  Transmission Date: 20061208
  Serious: Yes (Hospitalization, Other)
  Sender: FDA-Public Use
  Company Number: 2006001784

PATIENT
  Age: 67 Year
  Sex: Male

DRUGS (6)
  1. CELEBREX [Suspect]
     Indication: ARTHRALGIA
     Dosage: 200 MG (200 MG, 1 IN 1 D), ORAL
     Route: 048
     Dates: start: 20010626
  2. CELEBREX [Suspect]
     Indication: ARTHRITIS
     Dosage: 200 MG (200 MG, 1 IN 1 D), ORAL
     Route: 048
     Dates: start: 20010626
  3. BEXTRA [Concomitant]
  4. ADVIL [Concomitant]
  5. ASPIRIN [Concomitant]
  6. VIOXX [Concomitant]

REACTIONS (4)
  - ABDOMINAL PAIN [None]
  - ACUTE CORONARY SYNDROME [None]
  - DYSPNOEA [None]
  - MYOCARDIAL INFARCTION [None]
